FAERS Safety Report 10296904 (Version 4)
Quarter: 2014Q4

REPORT INFORMATION
  Report Type: Spontaneous
  Country: US (occurrence: US)
  Receive Date: 20140711
  Receipt Date: 20141001
  Transmission Date: 20150528
  Serious: No
  Sender: FDA-Public Use
  Company Number: US-AMGEN INC.-USASP2014050589

PATIENT
  Age: 53 Year
  Sex: Male
  Weight: 83.9 kg

DRUGS (1)
  1. ENBREL [Suspect]
     Active Substance: ETANERCEPT
     Indication: PSORIATIC ARTHROPATHY
     Dosage: 50 MG, QWK
     Route: 058
     Dates: start: 20130801

REACTIONS (5)
  - Splinter [Recovered/Resolved]
  - Nail bed infection [Recovered/Resolved]
  - Extra dose administered [Recovered/Resolved]
  - Localised infection [Recovered/Resolved]
  - Injection site haemorrhage [Recovered/Resolved]

NARRATIVE: CASE EVENT DATE: 2014
